FAERS Safety Report 7386309-0 (Version None)
Quarter: 2011Q1

REPORT INFORMATION
  Report Type: 
  Country: None (occurrence: None)
  Receive Date: 20110331
  Receipt Date: 20110317
  Transmission Date: 20110831
  Serious: Yes (Other)
  Sender: FDA-Public Use
  Company Number: PHHY2010CA75378

PATIENT
  Sex: Female

DRUGS (1)
  1. ACLASTA [Suspect]
     Dosage: 5 MG/100ML, ONCE A YEAR
     Route: 042
     Dates: start: 20090801

REACTIONS (1)
  - CEREBROVASCULAR ACCIDENT [None]
